FAERS Safety Report 12979663 (Version 2)
Quarter: 2017Q1

REPORT INFORMATION
  Report Type: Report from Study
  Country: US (occurrence: US)
  Receive Date: 20161128
  Receipt Date: 20170125
  Transmission Date: 20170428
  Serious: Yes (Hospitalization)
  Sender: FDA-Public Use
  Company Number: US-PFIZER INC-2016540508

PATIENT
  Age: 47 Year
  Sex: Female
  Weight: 106.1 kg

DRUGS (14)
  1. DOXORUBICIN HCL [Suspect]
     Active Substance: DOXORUBICIN HYDROCHLORIDE
     Indication: SOFT TISSUE SARCOMA
     Dosage: 75 MG/M2, ON DAY ONE OF A 21 DAY CYCLE
     Route: 042
  2. BLINDED THERAPY [Suspect]
     Active Substance: INVESTIGATIONAL PRODUCT
     Indication: SOFT TISSUE SARCOMA
     Dosage: UNK, ON DAY ONE AND EIGHT OF A 21 DAY CYCLE
     Route: 042
     Dates: start: 20160316, end: 20160914
  3. LAMICTAL [Concomitant]
     Active Substance: LAMOTRIGINE
     Indication: ANXIETY
     Dosage: UNK
     Dates: start: 20150413
  4. LOVENOX [Concomitant]
     Active Substance: ENOXAPARIN SODIUM
     Indication: HYPERTENSION
     Dosage: UNK
     Dates: start: 201502
  5. NOVOLOG [Concomitant]
     Active Substance: INSULIN ASPART
     Indication: DIABETES MELLITUS
     Dosage: UNK
  6. NORVASC [Concomitant]
     Active Substance: AMLODIPINE BESYLATE
     Indication: DIABETES MELLITUS
     Dosage: UNK
     Dates: start: 20160122
  7. BLINDED THERAPY [Suspect]
     Active Substance: INVESTIGATIONAL PRODUCT
     Dosage: UNK
     Dates: start: 20160928
  8. DEXRAZOXANE. [Suspect]
     Active Substance: DEXRAZOXANE
     Indication: SOFT TISSUE SARCOMA
     Dosage: 1605.0 MG, ON DAY ONE OF A 21 DAY CYCLE
     Route: 042
     Dates: start: 20160627, end: 20160725
  9. LANTUS [Concomitant]
     Active Substance: INSULIN GLARGINE
     Indication: DIABETES MELLITUS
     Dosage: UNK
     Dates: start: 20160415
  10. WELLBUTRIN [Concomitant]
     Active Substance: BUPROPION HYDROCHLORIDE
     Indication: ANXIETY
     Dosage: UNK
     Dates: start: 20160302
  11. OXYCODONE [Concomitant]
     Active Substance: OXYCODONE
     Indication: PROPHYLAXIS
  12. ATIVAN [Concomitant]
     Active Substance: LORAZEPAM
     Indication: ANXIETY
     Dosage: UNK
     Dates: start: 20160316
  13. PROZAC [Concomitant]
     Active Substance: FLUOXETINE HYDROCHLORIDE
     Indication: ANXIETY
     Dosage: UNK
     Dates: start: 20160311
  14. OXYCODONE [Concomitant]
     Active Substance: OXYCODONE
     Indication: OBSESSIVE-COMPULSIVE DISORDER

REACTIONS (2)
  - Hyperglycaemia [Recovered/Resolved]
  - Anxiety [Recovered/Resolved]

NARRATIVE: CASE EVENT DATE: 20161104
